FAERS Safety Report 20430380 (Version 1)
Quarter: 2022Q1

REPORT INFORMATION
  Report Type: Spontaneous
  Country: US (occurrence: None)
  Receive Date: 20220203
  Receipt Date: 20220203
  Transmission Date: 20220423
  Serious: No
  Sender: FDA-Public Use
  Company Number: None

PATIENT
  Sex: Female

DRUGS (21)
  1. CAPECITABINE [Suspect]
     Active Substance: CAPECITABINE
     Indication: Colon cancer
     Dosage: FREQUENCY : TWICE A DAY;?
     Route: 048
  2. TRELEGY ELLIPTA [Concomitant]
     Active Substance: FLUTICASONE FUROATE\UMECLIDINIUM BROMIDE\VILANTEROL TRIFENATATE
  3. VITAMIN D2 [Concomitant]
     Active Substance: ERGOCALCIFEROL
  4. ALBUTEROL [Concomitant]
     Active Substance: ALBUTEROL
  5. BIOTENE NOS [Concomitant]
     Active Substance: CETYLPYRIDINIUM CHLORIDE OR SODIUM FLUORIDE OR SODIUM MONOFLUOROPHOSPHATE OR GLUCOSE OXIDASE\LACTOFE
  6. BONIVA [Concomitant]
     Active Substance: IBANDRONATE SODIUM
  7. CRESTOR [Concomitant]
     Active Substance: ROSUVASTATIN CALCIUM
  8. CYMBALTA [Concomitant]
     Active Substance: DULOXETINE HYDROCHLORIDE
  9. ELIQUIS [Concomitant]
     Active Substance: APIXABAN
  10. ALLEGRA [Concomitant]
     Active Substance: FEXOFENADINE HYDROCHLORIDE
  11. LASIX [Concomitant]
     Active Substance: FUROSEMIDE
  12. NORCO [Concomitant]
     Active Substance: ACETAMINOPHEN\HYDROCODONE BITARTRATE
  13. LANOXIN [Concomitant]
     Active Substance: DIGOXIN
  14. latonoprost [Concomitant]
  15. LEVEMIR [Concomitant]
     Active Substance: INSULIN DETEMIR
  16. LYRICA [Concomitant]
     Active Substance: PREGABALIN
  17. NOVOLOG [Concomitant]
     Active Substance: INSULIN ASPART
  18. OMEPRAZOLE [Concomitant]
     Active Substance: OMEPRAZOLE
  19. PIOGLITAZONE [Concomitant]
     Active Substance: PIOGLITAZONE
  20. POTASSIUM [Concomitant]
     Active Substance: POTASSIUM
  21. PROPAFENONE [Concomitant]
     Active Substance: PROPAFENONE

REACTIONS (1)
  - Death [None]
